FAERS Safety Report 10053719 (Version 1)
Quarter: 2014Q2

REPORT INFORMATION
  Report Type: Spontaneous
  Country: MX (occurrence: MX)
  Receive Date: 20140402
  Receipt Date: 20140402
  Transmission Date: 20141212
  Serious: Yes (Other)
  Sender: FDA-Public Use
  Company Number: PHHY2014MX039401

PATIENT
  Age: 53 Year
  Sex: Female

DRUGS (3)
  1. ACLASTA [Suspect]
     Indication: OSTEOPOROSIS
     Dosage: 5 MG/100ML, ANNUALLY
     Route: 042
     Dates: start: 2011
  2. ACLASTA [Suspect]
     Dosage: 5 MG/100ML, ANNUALLY
     Route: 042
     Dates: start: 2013
  3. ACLASTA [Suspect]
     Dosage: 5 MG/100ML, ANNUALLY
     Route: 042
     Dates: start: 20140306

REACTIONS (2)
  - Breast cancer [Recovered/Resolved]
  - Anxiety [Not Recovered/Not Resolved]
